FAERS Safety Report 24701271 (Version 1)
Quarter: 2024Q4

REPORT INFORMATION
  Report Type: Spontaneous
  Country: US (occurrence: None)
  Receive Date: 20241205
  Receipt Date: 20241205
  Transmission Date: 20250115
  Serious: Yes (Hospitalization)
  Sender: Public
  Company Number: None

PATIENT
  Age: 72 Year
  Sex: Female
  Weight: 57.6 kg

DRUGS (7)
  1. CYCLOPHOSPHAMIDE [Suspect]
     Active Substance: CYCLOPHOSPHAMIDE
     Dates: end: 20241116
  2. CYTARABINE [Suspect]
     Active Substance: CYTARABINE
     Dates: end: 20241114
  3. DEXAMETHASONE [Suspect]
     Active Substance: DEXAMETHASONE
     Dates: end: 20241125
  4. DOXORUBICIN HYDROCHLORIDE [Suspect]
     Active Substance: DOXORUBICIN HYDROCHLORIDE
     Dates: end: 20241116
  5. METHOTREXATE [Suspect]
     Active Substance: METHOTREXATE
     Dates: end: 20241120
  6. PONATINIB [Suspect]
     Active Substance: PONATINIB
     Dates: end: 20241125
  7. VINCRISTINE SULFATE [Suspect]
     Active Substance: VINCRISTINE SULFATE
     Dates: end: 20241123

REACTIONS (11)
  - Dizziness [None]
  - Palpitations [None]
  - Supraventricular tachycardia [None]
  - Dyspnoea [None]
  - Pericardial effusion [None]
  - Atrioventricular block [None]
  - Tricuspid valve incompetence [None]
  - Pancytopenia [None]
  - Urine output increased [None]
  - Dysuria [None]
  - Hyponatraemia [None]

NARRATIVE: CASE EVENT DATE: 20241125
